FAERS Safety Report 14336306 (Version 1)
Quarter: 2017Q4

REPORT INFORMATION
  Report Type: Spontaneous
  Country: US (occurrence: US)
  Receive Date: 20171229
  Receipt Date: 20171229
  Transmission Date: 20180321
  Serious: Yes (Other)
  Sender: FDA-Public Use
  Company Number: US-TESARO INC.-TS51-00577-2017USA

PATIENT
  Sex: Female

DRUGS (2)
  1. NO DRUG NAME [Concomitant]
     Indication: PRODUCT USED FOR UNKNOWN INDICATION
     Route: 065
  2. ROLAPITANT HYDROCHLORIDE [Suspect]
     Active Substance: ROLAPITANT
     Route: 042

REACTIONS (4)
  - Product use complaint [Unknown]
  - Medication error [Unknown]
  - Infusion related reaction [Unknown]
  - Liquid product physical issue [Unknown]
